FAERS Safety Report 7234743-1 (Version None)
Quarter: 2011Q1

REPORT INFORMATION
  Report Type: 
  Country: None (occurrence: None)
  Receive Date: 20110120
  Receipt Date: 20110110
  Transmission Date: 20110831
  Serious: Yes (Hospitalization)
  Sender: FDA-Public Use
  Company Number: 165573

PATIENT
  Sex: Female
  Weight: 72 kg

DRUGS (5)
  1. ATENOLOL [Concomitant]
     Indication: HYPERTENSION
     Dates: start: 20020801
  2. AMANTADINE HCL [Concomitant]
     Indication: FATIGUE
     Dates: start: 20020101
  3. AVONEX [Suspect]
     Route: 030
  4. AVONEX [Suspect]
     Route: 030
  5. AVONEX [Suspect]
     Indication: MULTIPLE SCLEROSIS
     Route: 030
     Dates: start: 20020308

REACTIONS (11)
  - INJECTION SITE PAIN [None]
  - MUSCLE SPASMS [None]
  - ABASIA [None]
  - TREMOR [None]
  - INFLUENZA LIKE ILLNESS [None]
  - MUSCLE SPASTICITY [None]
  - VISUAL IMPAIRMENT [None]
  - NERVE COMPRESSION [None]
  - MUSCULAR WEAKNESS [None]
  - INJECTION SITE HAEMATOMA [None]
  - MULTIPLE SCLEROSIS RELAPSE [None]
